FAERS Safety Report 10245359 (Version 1)
Quarter: 2014Q2

REPORT INFORMATION
  Report Type: Spontaneous
  Country: US (occurrence: US)
  Receive Date: 20140618
  Receipt Date: 20140618
  Transmission Date: 20141212
  Serious: Yes (Other)
  Sender: FDA-Public Use
  Company Number: US-BAXTER-2014BAX030377

PATIENT
  Age: 6 Month
  Sex: Female

DRUGS (2)
  1. GAMMAGARD LIQUID [Suspect]
     Indication: PRODUCT USED FOR UNKNOWN INDICATION
     Route: 042
  2. METHYLPREDISOLONE [Suspect]
     Indication: PRODUCT USED FOR UNKNOWN INDICATION
     Route: 065

REACTIONS (7)
  - Histiocytosis haematophagic [Unknown]
  - Ascites [Recovered/Resolved]
  - Hepatosplenomegaly [Recovered/Resolved]
  - Abdominal distension [Unknown]
  - Hypoalbuminaemia [Recovered/Resolved]
  - Myelofibrosis [Unknown]
  - Vitamin D deficiency [Unknown]
